FAERS Safety Report 6222854-9 (Version None)
Quarter: 2009Q2

REPORT INFORMATION
  Report Type: 
  Country: None (occurrence: None)
  Receive Date: 20090611
  Receipt Date: 20090603
  Transmission Date: 20091009
  Serious: Yes (Other)
  Sender: FDA-Public Use
  Company Number: B0578212A

PATIENT
  Age: 36 Year
  Sex: Female

DRUGS (3)
  1. ZIDOVUDINE [Suspect]
     Indication: HIV INFECTION
  2. LAMIVUDINE [Suspect]
     Indication: HIV INFECTION
  3. ABACAVIR [Suspect]
     Indication: HIV INFECTION

REACTIONS (5)
  - FOLLICULITIS [None]
  - IMMUNE RECONSTITUTION SYNDROME [None]
  - PRURITUS [None]
  - RASH PAPULAR [None]
  - RASH PUSTULAR [None]
